FAERS Safety Report 23443843 (Version 1)
Quarter: 2024Q1

REPORT INFORMATION
  Report Type: Spontaneous
  Country: US (occurrence: US)
  Receive Date: 20240125
  Receipt Date: 20240125
  Transmission Date: 20240410
  Serious: Yes (Other)
  Sender: FDA-Public Use
  Company Number: US-TEVA-VS-3139106

PATIENT
  Age: 66 Year
  Sex: Female
  Weight: 54.88 kg

DRUGS (4)
  1. COPAXONE [Suspect]
     Active Substance: GLATIRAMER ACETATE
     Indication: Multiple sclerosis
     Route: 065
     Dates: start: 2012
  2. COPAXONE [Suspect]
     Active Substance: GLATIRAMER ACETATE
     Dosage: TIME INTERVAL: 0.33333333 WEEKS
     Route: 065
  3. IMITREX [Concomitant]
     Active Substance: SUMATRIPTAN SUCCINATE
     Indication: Migraine
  4. LUNESTA [Concomitant]
     Active Substance: ESZOPICLONE
     Indication: Sleep disorder

REACTIONS (10)
  - Magnetic resonance imaging abnormal [Unknown]
  - Product dose omission issue [Unknown]
  - Needle issue [Unknown]
  - Fear of injection [Not Recovered/Not Resolved]
  - Hypoaesthesia [Not Recovered/Not Resolved]
  - Injection site pain [Unknown]
  - Grip strength decreased [Not Recovered/Not Resolved]
  - Multiple sclerosis [Not Recovered/Not Resolved]
  - Injection site urticaria [Unknown]
  - Injection site discharge [Unknown]

NARRATIVE: CASE EVENT DATE: 20230101
